FAERS Safety Report 20941990 (Version 1)
Quarter: 2022Q2

REPORT INFORMATION
  Report Type: Spontaneous
  Country: US (occurrence: US)
  Receive Date: 20220610
  Receipt Date: 20220610
  Transmission Date: 20220720
  Serious: Yes (Death, Hospitalization)
  Sender: FDA-Public Use
  Company Number: US-STRIDES ARCOLAB LIMITED-2022SP006736

PATIENT
  Age: 34 Year
  Sex: Female

DRUGS (3)
  1. OXYCODONE [Suspect]
     Active Substance: OXYCODONE
     Indication: Pain
     Dosage: UNK, PATIENT WAS OBSERVED ATTEMPTING TO CRUSH HER PRESCRIBED OXYCODONE AND DIPHENHYDRAMINE TO SELF-A
     Route: 042
  2. HYDROMORPHONE [Suspect]
     Active Substance: HYDROMORPHONE
     Indication: Pain
     Dosage: UNK, WAS OBSERVED STORING THE MEDICATION IN HER CHEEK AND BLANKET
     Route: 065
  3. DIPHENHYDRAMINE [Suspect]
     Active Substance: DIPHENHYDRAMINE
     Indication: Pain
     Dosage: UNK, SHE WAS OBSERVED ATTEMPTING TO CRUSH HER PRESCRIBED OXYCODONE AND DIPHENHYDRAMINE TO SELF-ADMIN
     Route: 065

REACTIONS (24)
  - Secondary amyloidosis [Fatal]
  - Pulseless electrical activity [Fatal]
  - Incorrect route of product administration [Fatal]
  - Proteinuria [Unknown]
  - Escherichia infection [Unknown]
  - Staphylococcal infection [Unknown]
  - Candida infection [Unknown]
  - Electrolyte imbalance [Unknown]
  - Nutritional condition abnormal [Unknown]
  - Chronic kidney disease [Unknown]
  - Granuloma [Unknown]
  - Fat necrosis [Unknown]
  - Cardiomegaly [Unknown]
  - Myocarditis [Unknown]
  - Hypothyroidism [Unknown]
  - Abdominal infection [Unknown]
  - Intentional product misuse [Fatal]
  - Drug abuse [Fatal]
  - Sepsis [Unknown]
  - Lung disorder [Unknown]
  - Cardiac failure [Unknown]
  - Nausea [Unknown]
  - Vomiting [Unknown]
  - Medication error [Unknown]
